FAERS Safety Report 9191589 (Version 1)
Quarter: 2013Q1

REPORT INFORMATION
  Report Type: Spontaneous
  Country: GR (occurrence: GR)
  Receive Date: 20130326
  Receipt Date: 20130326
  Transmission Date: 20140127
  Serious: Yes (Life-Threatening, Hospitalization)
  Sender: FDA-Public Use
  Company Number: GR-ACTELION-A-CH2013-80769

PATIENT
  Age: 70 Year
  Sex: Male
  Weight: 70 kg

DRUGS (3)
  1. TRACLEER [Suspect]
     Indication: PULMONARY ARTERIAL HYPERTENSION
     Dosage: 62.5 MG, UNK
     Route: 048
  2. TRACLEER [Suspect]
     Dosage: 125 MG, UNK
     Route: 048
  3. TRACLEER [Suspect]
     Dosage: UNK
     Route: 048

REACTIONS (6)
  - Acute pulmonary oedema [Recovered/Resolved]
  - Pleural effusion [Recovered/Resolved]
  - Syncope [Recovered/Resolved]
  - Respiratory tract infection [Recovering/Resolving]
  - Altered state of consciousness [Recovering/Resolving]
  - Therapy cessation [Recovered/Resolved]
